FAERS Safety Report 13328612 (Version 1)
Quarter: 2017Q1

REPORT INFORMATION
  Report Type: Spontaneous
  Country: US (occurrence: US)
  Receive Date: 20170310
  Receipt Date: 20170310
  Transmission Date: 20170428
  Serious: No
  Sender: FDA-Public Use
  Company Number: None

PATIENT
  Age: 76 Year
  Sex: Male
  Weight: 119.5 kg

DRUGS (1)
  1. SODIUM BICARBONATE INJECTION, USP (0639-25) [Suspect]
     Active Substance: SODIUM BICARBONATE
     Indication: PULSELESS ELECTRICAL ACTIVITY
     Dosage: ?          OTHER FREQUENCY:ONCE;?
     Route: 040

REACTIONS (4)
  - Product package associated injury [None]
  - Laceration [None]
  - Wrong technique in product usage process [None]
  - Product container issue [None]

NARRATIVE: CASE EVENT DATE: 20170301
